FAERS Safety Report 11504117 (Version 1)
Quarter: 2015Q3

REPORT INFORMATION
  Report Type: Spontaneous
  Country: US (occurrence: US)
  Receive Date: 20150914
  Receipt Date: 20150914
  Transmission Date: 20151125
  Serious: No
  Sender: FDA-Public Use
  Company Number: GXBR2015US001838

PATIENT
  Sex: Female
  Weight: 89.8 kg

DRUGS (2)
  1. ALPRAZOLAM TABLETS USP [Suspect]
     Active Substance: ALPRAZOLAM
     Indication: ANXIETY
     Dosage: 1 MG, 5QD
     Route: 048
  2. ANTIHYPERTENSIVE DRUGS [Concomitant]
     Active Substance: UNSPECIFIED INGREDIENT
     Indication: HYPERTENSION
     Dosage: UNK DF, UNK

REACTIONS (5)
  - Malaise [Unknown]
  - Diarrhoea [Recovered/Resolved]
  - Nausea [Not Recovered/Not Resolved]
  - Abdominal pain upper [Recovered/Resolved]
  - Vomiting [Recovered/Resolved]
